FAERS Safety Report 14597160 (Version 2)
Quarter: 2019Q2

REPORT INFORMATION
  Report Type: Spontaneous
  Country: US (occurrence: US)
  Receive Date: 20180305
  Receipt Date: 20190510
  Transmission Date: 20190711
  Serious: No
  Sender: FDA-Public Use
  Company Number: US-SHIRE-US201807792

PATIENT
  Age: 55 Year
  Sex: Female

DRUGS (8)
  1. XIIDRA [Suspect]
     Active Substance: LIFITEGRAST
     Dosage: UNK, 1X/DAY:QD
     Route: 047
  2. NEOMYCIN. [Concomitant]
     Active Substance: NEOMYCIN
     Indication: INSTILLATION SITE PAIN
  3. NEOMYCIN. [Concomitant]
     Active Substance: NEOMYCIN
     Indication: CONJUNCTIVAL HAEMORRHAGE
  4. POLYMYXIN B. [Concomitant]
     Active Substance: POLYMYXIN B
     Indication: CONJUNCTIVAL HAEMORRHAGE
  5. POLYMYXIN B. [Concomitant]
     Active Substance: POLYMYXIN B
     Indication: INSTILLATION SITE PAIN
  6. XIIDRA [Suspect]
     Active Substance: LIFITEGRAST
     Indication: DRY EYE
     Dosage: 1 GTT, 2X/DAY:BID
     Route: 047
  7. DEXAMETHASONE. [Concomitant]
     Active Substance: DEXAMETHASONE
     Indication: CONJUNCTIVAL HAEMORRHAGE
  8. DEXAMETHASONE. [Concomitant]
     Active Substance: DEXAMETHASONE
     Indication: INSTILLATION SITE PAIN

REACTIONS (6)
  - Eye disorder [Unknown]
  - Instillation site pruritus [Recovered/Resolved]
  - Instillation site reaction [Unknown]
  - Sinusitis [Unknown]
  - Dysgeusia [Unknown]
  - Pharyngeal swelling [Unknown]
